FAERS Safety Report 5030830-7 (Version None)
Quarter: 2006Q2

REPORT INFORMATION
  Report Type: 
  Country: None (occurrence: None)
  Receive Date: 20060619
  Receipt Date: 20060610
  Transmission Date: 20061013
  Serious: Yes (Disabling)
  Sender: FDA-Public Use
  Company Number: 200612415GDS

PATIENT
  Sex: Male

DRUGS (1)
  1. CIPROFLOXACIN HCL [Suspect]
     Indication: LUNG INFECTION
     Dosage: 500 MG, TOTAL DAILY, ORAL/A FEW DAYS
     Route: 048

REACTIONS (3)
  - CEREBROVASCULAR ACCIDENT [None]
  - FACIAL PALSY [None]
  - MUSCULAR WEAKNESS [None]
